FAERS Safety Report 22695578 (Version 3)
Quarter: 2024Q2

REPORT INFORMATION
  Report Type: Report from Study
  Country: GB (occurrence: GB)
  Receive Date: 20230712
  Receipt Date: 20240613
  Transmission Date: 20240716
  Serious: Yes (Other)
  Sender: FDA-Public Use
  Company Number: GB-ABBVIE-22K-167-4286664-00

PATIENT
  Age: 60 Year
  Sex: Female

DRUGS (6)
  1. SKYRIZI [Suspect]
     Active Substance: RISANKIZUMAB-RZAA
     Indication: Psoriasis
     Dosage: FORM STRENGTH: 150 MG
     Route: 058
     Dates: start: 20200117, end: 20200117
  2. SKYRIZI [Suspect]
     Active Substance: RISANKIZUMAB-RZAA
     Route: 058
  3. SKYRIZI [Suspect]
     Active Substance: RISANKIZUMAB-RZAA
     Route: 058
  4. SKYRIZI [Suspect]
     Active Substance: RISANKIZUMAB-RZAA
     Indication: Psoriasis
     Dosage: STRENGTH: 150 MG
     Route: 058
  5. HYDROXYCHLOROQUINE [Suspect]
     Active Substance: HYDROXYCHLOROQUINE
     Indication: Pigmentation disorder
     Route: 065
     Dates: start: 202212
  6. QUINACRINE HYDROCHLORIDE [Concomitant]
     Active Substance: QUINACRINE HYDROCHLORIDE
     Indication: Product used for unknown indication

REACTIONS (22)
  - Systemic lupus erythematosus [Unknown]
  - Skin irritation [Unknown]
  - Dry eye [Unknown]
  - Eye pain [Unknown]
  - Headache [Not Recovered/Not Resolved]
  - Self-consciousness [Unknown]
  - Migraine [Recovered/Resolved]
  - Psoriasis [Recovered/Resolved]
  - Rash macular [Unknown]
  - Dry skin [Unknown]
  - Anxiety [Unknown]
  - Inflammation [Unknown]
  - Alopecia [Unknown]
  - Visual impairment [Unknown]
  - Eye inflammation [Not Recovered/Not Resolved]
  - Skin discolouration [Not Recovered/Not Resolved]
  - Psoriasis [Unknown]
  - Skin hyperpigmentation [Not Recovered/Not Resolved]
  - Mental disorder [Unknown]
  - Cataract [Not Recovered/Not Resolved]
  - Hypertension [Not Recovered/Not Resolved]
  - Migraine [Not Recovered/Not Resolved]

NARRATIVE: CASE EVENT DATE: 20220101
